FAERS Safety Report 23168338 (Version 1)
Quarter: 2023Q4

REPORT INFORMATION
  Report Type: Spontaneous
  Country: US (occurrence: None)
  Receive Date: 20231110
  Receipt Date: 20231110
  Transmission Date: 20240110
  Serious: Yes (Other)
  Sender: FDA-Public Use
  Company Number: US-PDX-000247

PATIENT
  Age: 53 Year
  Sex: Male

DRUGS (3)
  1. METOPROLOL [Interacting]
     Active Substance: METOPROLOL
     Indication: Atrial fibrillation
     Dosage: EXTENDED RELEASE
     Route: 048
  2. PROPAFENONE [Interacting]
     Active Substance: PROPAFENONE
     Indication: Atrial fibrillation
     Dosage: (PILL-IN-THE-POCKET)
     Route: 048
  3. DILTIAZEM [Concomitant]
     Active Substance: DILTIAZEM
     Indication: Atrial fibrillation
     Dosage: DRIP, TOTAL OF 10 MG
     Route: 042

REACTIONS (6)
  - Drug interaction [Unknown]
  - Headache [Unknown]
  - Nausea [Unknown]
  - Mental impairment [Unknown]
  - Atrial fibrillation [Recovered/Resolved]
  - Product use in unapproved indication [Unknown]
